FAERS Safety Report 19197247 (Version 1)
Quarter: 2021Q2

REPORT INFORMATION
  Report Type: Spontaneous
  Country: US (occurrence: US)
  Receive Date: 20210429
  Receipt Date: 20210429
  Transmission Date: 20210717
  Serious: Yes (Other)
  Sender: FDA-Public Use
  Company Number: US-TEVA-2021-US-1905737

PATIENT
  Sex: Female

DRUGS (1)
  1. OMACETAXINE [Suspect]
     Active Substance: OMACETAXINE
     Route: 065

REACTIONS (1)
  - Chronic myeloid leukaemia [Unknown]
